FAERS Safety Report 12998513 (Version 4)
Quarter: 2025Q1

REPORT INFORMATION
  Report Type: Spontaneous
  Country: SD (occurrence: SD)
  Receive Date: 20161205
  Receipt Date: 20250314
  Transmission Date: 20250409
  Serious: Yes (Hospitalization)
  Sender: JOHNSON AND JOHNSON
  Company Number: SD-JNJFOC-20161200839

PATIENT
  Age: 38 Year
  Sex: Male

DRUGS (6)
  1. NIZORAL [Suspect]
     Active Substance: KETOCONAZOLE
     Indication: Mycetoma mycotic
     Dosage: DISCONTINUED AFTER THREE MONTHS IN 2003
     Route: 065
     Dates: start: 2003
  2. NIZORAL [Suspect]
     Active Substance: KETOCONAZOLE
     Route: 065
     Dates: start: 2009
  3. SPORANOX [Suspect]
     Active Substance: ITRACONAZOLE
     Indication: Mycetoma mycotic
     Dosage: 2012
     Route: 065
     Dates: start: 2012
  4. SPORANOX [Suspect]
     Active Substance: ITRACONAZOLE
     Route: 065
  5. AMPHOTERICIN B [Suspect]
     Active Substance: AMPHOTERICIN B
     Indication: Mycetoma mycotic
     Dosage: FOR FOUR WEEKS WITH SOME IMPROVEMENT
     Route: 042
  6. VORICONAZOLE [Suspect]
     Active Substance: VORICONAZOLE
     Indication: Mycetoma mycotic
     Dosage: 6 MONTHS
     Route: 065

REACTIONS (8)
  - Drug resistance [Unknown]
  - Lip dry [Unknown]
  - Chapped lips [Unknown]
  - Skin hyperpigmentation [Unknown]
  - Gynaecomastia [Unknown]
  - Hepatic function abnormal [Unknown]
  - Off label use [Unknown]
  - Product use in unapproved indication [Unknown]
